FAERS Safety Report 6170569-8 (Version None)
Quarter: 2009Q2

REPORT INFORMATION
  Report Type: 
  Country: None (occurrence: None)
  Receive Date: 20090428
  Receipt Date: 20090422
  Transmission Date: 20091009
  Serious: Yes (Life-Threatening)
  Sender: FDA-Public Use
  Company Number: FR-BAXTER-2009BH006831

PATIENT
  Age: 82 Year
  Sex: Male

DRUGS (9)
  1. ENDOXAN BAXTER [Suspect]
     Indication: B-CELL LYMPHOMA
     Route: 042
     Dates: start: 20090210, end: 20090210
  2. ENDOXAN BAXTER [Suspect]
     Route: 042
     Dates: start: 20090305
  3. MABTHERA [Suspect]
     Indication: B-CELL LYMPHOMA
     Route: 042
     Dates: start: 20090210, end: 20090210
  4. MABTHERA [Suspect]
     Route: 042
     Dates: start: 20090305
  5. VINCRISTINE [Suspect]
     Indication: B-CELL LYMPHOMA
     Route: 042
     Dates: start: 20090305
  6. VINCRISTINE [Suspect]
     Route: 042
     Dates: start: 20090210, end: 20090210
  7. ONDANSETRON HCL [Concomitant]
     Indication: NON-HODGKIN'S LYMPHOMA
     Route: 042
     Dates: start: 20090210, end: 20090210
  8. PREDNISOLONE [Concomitant]
     Indication: NON-HODGKIN'S LYMPHOMA
     Route: 042
     Dates: start: 20090210, end: 20090210
  9. POLARAMINE [Concomitant]
     Indication: NON-HODGKIN'S LYMPHOMA
     Route: 042
     Dates: start: 20090210, end: 20090210

REACTIONS (3)
  - CYANOSIS [None]
  - HYPOTENSION [None]
  - OXYGEN SATURATION DECREASED [None]
